FAERS Safety Report 7934394-7 (Version None)
Quarter: 2011Q4

REPORT INFORMATION
  Report Type: 
  Country: None (occurrence: None)
  Receive Date: 20111122
  Receipt Date: 20110622
  Transmission Date: 20120403
  Serious: Yes (Hospitalization)
  Sender: FDA-Public Use
  Company Number: US-GLAXOSMITHKLINE-A0933317A

PATIENT
  Age: 73 Year
  Sex: Male

DRUGS (7)
  1. LIPITOR [Concomitant]
  2. METOPROLOL TARTRATE [Concomitant]
  3. RITUXIMAB [Concomitant]
     Indication: IDIOPATHIC THROMBOCYTOPENIC PURPURA
     Dates: start: 20110428, end: 20110505
  4. IMMUNE GLOBULIN INTRAVENOUS (HUMAN) [Concomitant]
     Indication: IDIOPATHIC THROMBOCYTOPENIC PURPURA
  5. PROMACTA [Suspect]
     Indication: THROMBOCYTOPENIA
     Dosage: 50MG PER DAY
     Route: 048
     Dates: start: 20110603, end: 20110622
  6. OMEPRAZOLE [Concomitant]
  7. ASPIRIN [Concomitant]

REACTIONS (6)
  - NAUSEA [None]
  - DYSPEPSIA [None]
  - MYALGIA [None]
  - VOMITING [None]
  - HEADACHE [None]
  - DECREASED APPETITE [None]
